FAERS Safety Report 23261532 (Version 1)
Quarter: 2023Q4

REPORT INFORMATION
  Report Type: Spontaneous
  Country: AU (occurrence: AU)
  Receive Date: 20231205
  Receipt Date: 20231205
  Transmission Date: 20240109
  Serious: Yes (Other)
  Sender: FDA-Public Use
  Company Number: AU-ORPHANEU-2023008429

PATIENT

DRUGS (1)
  1. ISTURISA [Suspect]
     Active Substance: OSILODROSTAT PHOSPHATE
     Indication: Pituitary-dependent Cushing^s syndrome
     Dosage: 1MG MORNING AND 2MG NIGHT, BID
     Route: 048
     Dates: start: 20211208

REACTIONS (1)
  - Palmar fasciitis [Not Recovered/Not Resolved]

NARRATIVE: CASE EVENT DATE: 20230101
